FAERS Safety Report 10354986 (Version 2)
Quarter: 2014Q3

REPORT INFORMATION
  Report Type: Spontaneous
  Country: US (occurrence: US)
  Receive Date: 20140731
  Receipt Date: 20140731
  Transmission Date: 20150326
  Serious: Yes (Hospitalization, Other)
  Sender: FDA-Public Use
  Company Number: US-009507513-2011SP005927

PATIENT
  Sex: Female
  Weight: 70.31 kg

DRUGS (5)
  1. NUVARING [Suspect]
     Active Substance: ETHINYL ESTRADIOL\ETONOGESTREL
     Indication: PREMENSTRUAL SYNDROME
     Dosage: UNK
     Route: 067
     Dates: start: 2002, end: 2004
  2. SYNTHROID [Concomitant]
     Active Substance: LEVOTHYROXINE SODIUM
     Indication: THYROID DISORDER
     Dosage: 100 MG, QD
     Dates: start: 20020123
  3. NUVARING [Suspect]
     Active Substance: ETHINYL ESTRADIOL\ETONOGESTREL
     Dosage: UNK
     Route: 067
     Dates: start: 2008, end: 20090408
  4. NUVARING [Suspect]
     Active Substance: ETHINYL ESTRADIOL\ETONOGESTREL
     Indication: DYSMENORRHOEA
     Dosage: UNK
     Route: 067
     Dates: start: 20060712
  5. NUVARING [Suspect]
     Active Substance: ETHINYL ESTRADIOL\ETONOGESTREL
     Indication: CONTRACEPTION
     Dosage: UNK
     Route: 067
     Dates: start: 20070831

REACTIONS (13)
  - Deep vein thrombosis [Unknown]
  - Hyperlipidaemia [Unknown]
  - Irritable bowel syndrome [Unknown]
  - Deep vein thrombosis [Recovered/Resolved]
  - Chest pain [Unknown]
  - Hypercoagulation [Unknown]
  - Foot fracture [Unknown]
  - Ovarian cyst [Unknown]
  - Fall [Unknown]
  - Deep vein thrombosis [Unknown]
  - Psoriasis [Unknown]
  - Haemorrhoids [Unknown]
  - Abdominal discomfort [Unknown]

NARRATIVE: CASE EVENT DATE: 200303
